FAERS Safety Report 9187044 (Version 1)
Quarter: 2013Q1

REPORT INFORMATION
  Report Type: Report from Study
  Country: BR (occurrence: BR)
  Receive Date: 20130325
  Receipt Date: 20130325
  Transmission Date: 20140127
  Serious: Yes (Death, Hospitalization, Other)
  Sender: FDA-Public Use
  Company Number: BR-ABBOTT-13P-020-1066995-00

PATIENT
  Age: 77 Year
  Sex: Female

DRUGS (7)
  1. HUMIRA [Suspect]
     Indication: RHEUMATOID ARTHRITIS
     Route: 058
     Dates: start: 2009
  2. HUMIRA [Suspect]
     Route: 058
  3. OMEPRAZOLE [Concomitant]
     Indication: PRODUCT USED FOR UNKNOWN INDICATION
  4. UNKNOWN VITAMIN [Concomitant]
     Indication: PRODUCT USED FOR UNKNOWN INDICATION
  5. UNKNOWN DRUG [Concomitant]
     Indication: BLOOD PRESSURE
  6. UNKNOWN DRUG [Concomitant]
     Indication: ANGIOPATHY
  7. UNKNOWN DRUG [Concomitant]
     Indication: VISUAL IMPAIRMENT

REACTIONS (8)
  - Death [Fatal]
  - Upper limb fracture [Unknown]
  - Fall [Unknown]
  - Postoperative wound infection [Unknown]
  - Depression [Unknown]
  - Anaemia [Unknown]
  - Decreased appetite [Unknown]
  - Pain [Unknown]
